FAERS Safety Report 23142641 (Version 1)
Quarter: 2023Q4

REPORT INFORMATION
  Report Type: Report from Study
  Country: US (occurrence: None)
  Receive Date: 20231103
  Receipt Date: 20231103
  Transmission Date: 20240109
  Serious: Yes (Death, Other)
  Sender: FDA-Public Use
  Company Number: 2023A248856

PATIENT
  Age: 28356 Day
  Sex: Female

DRUGS (1)
  1. LYNPARZA [Suspect]
     Active Substance: OLAPARIB
     Indication: Brain cancer metastatic
     Route: 048
     Dates: start: 20230425

REACTIONS (1)
  - Death [Fatal]

NARRATIVE: CASE EVENT DATE: 20230927
